FAERS Safety Report 6495808-5 (Version None)
Quarter: 2009Q4

REPORT INFORMATION
  Report Type: 
  Country: None (occurrence: None)
  Receive Date: 20091214
  Receipt Date: 20090814
  Transmission Date: 20100525
  Serious: No
  Sender: FDA-Public Use
  Company Number: US-BRISTOL-MYERS SQUIBB COMPANY-14741722

PATIENT
  Age: 57 Year
  Sex: Female
  Weight: 59 kg

DRUGS (9)
  1. ABILIFY [Suspect]
     Indication: DEPRESSION
     Dosage: STARTED 8 MONTHS AGO
     Route: 048
  2. ZOLOFT [Suspect]
     Dosage: TAKEN FOR 1.5 MONTHS AND DISCONTINUED.
  3. LAMICTAL [Concomitant]
     Dosage: TAKEN AT BED TIME. INCREASED TO 50MG HS.
  4. SYNTHROID [Concomitant]
  5. NOVATEC [Concomitant]
  6. AMLODIPINE [Concomitant]
  7. CALCIUM [Concomitant]
  8. ASCORBIC ACID [Concomitant]
  9. BABY ASPIRIN [Concomitant]

REACTIONS (3)
  - DEPRESSION [None]
  - JOINT SWELLING [None]
  - WEIGHT INCREASED [None]
